FAERS Safety Report 11501951 (Version 1)
Quarter: 2015Q3

REPORT INFORMATION
  Report Type: Spontaneous
  Country: US (occurrence: US)
  Receive Date: 20150914
  Receipt Date: 20150914
  Transmission Date: 20151125
  Serious: Yes (Hospitalization)
  Sender: FDA-Public Use
  Company Number: US-TEVA-592607USA

PATIENT
  Age: 31 Year
  Sex: Male
  Weight: 131.8 kg

DRUGS (5)
  1. TRAZODONE [Concomitant]
     Active Substance: TRAZODONE HYDROCHLORIDE
     Indication: SCHIZOPHRENIA
     Dosage: 150MG NIGHTLY
     Route: 065
  2. LURASIDONE [Suspect]
     Active Substance: LURASIDONE
     Indication: SUICIDE ATTEMPT
     Dosage: SEVENTEEN 80MG TABLETS (1360MG)
     Route: 048
  3. CLONAZEPAM. [Suspect]
     Active Substance: CLONAZEPAM
     Indication: SCHIZOPHRENIA
     Dosage: 1MG EVERY 8 HOURS AS NEEDED
     Route: 065
  4. CLONAZEPAM. [Suspect]
     Active Substance: CLONAZEPAM
     Indication: SUICIDE ATTEMPT
     Dosage: FIVE 1MG TABLETS (5MG)
     Route: 048
  5. LURASIDONE [Suspect]
     Active Substance: LURASIDONE
     Indication: SCHIZOPHRENIA
     Dosage: 160MG NIGHTLY
     Route: 065

REACTIONS (4)
  - Blood thyroid stimulating hormone increased [Recovered/Resolved]
  - Suicide attempt [Recovered/Resolved]
  - Hypertension [Recovered/Resolved]
  - Intentional overdose [Recovered/Resolved]
